FAERS Safety Report 12696018 (Version 1)
Quarter: 2016Q3

REPORT INFORMATION
  Report Type: Spontaneous
  Country: US (occurrence: US)
  Receive Date: 20160829
  Receipt Date: 20160829
  Transmission Date: 20161109
  Serious: Yes (Other)
  Sender: FDA-Public Use
  Company Number: US-RELYPSA-RLY2016001979

PATIENT
  Sex: Male

DRUGS (11)
  1. PRAVACHOL [Concomitant]
     Active Substance: PRAVASTATIN SODIUM
  2. VELTASSA [Suspect]
     Active Substance: PATIROMER
     Indication: HYPERKALAEMIA
     Dosage: 8.4 G, QD
     Route: 048
  3. GABAPENTIN. [Concomitant]
     Active Substance: GABAPENTIN
  4. ATACAND [Concomitant]
     Active Substance: CANDESARTAN CILEXETIL
  5. RENVELA [Concomitant]
     Active Substance: SEVELAMER CARBONATE
  6. DIALYVITE 3000 [Concomitant]
     Active Substance: .ALPHA.-TOCOPHEROL SUCCINATE, D-\ASCORBIC ACID\BIOTIN\CALCIUM PANTOTHENATE\COBALAMIN\FOLIC ACID\NIACINAMIDE\PYRIDOXINE HYDROCHLORIDE\RIBOFLAVIN\SELENOCYSTEINE\THIAMINE MONONITRATE\ZINC CITRATE
  7. PRANDIN [Concomitant]
     Active Substance: REPAGLINIDE
  8. LEVEMIR [Concomitant]
     Active Substance: INSULIN DETEMIR
  9. VELTASSA [Suspect]
     Active Substance: PATIROMER
     Dosage: 8.4 G, TAKEN ON NON-DIALYSIS DAYS
     Route: 048
  10. NORVASC [Concomitant]
     Active Substance: AMLODIPINE BESYLATE
  11. TUMS [Concomitant]
     Active Substance: CALCIUM CARBONATE

REACTIONS (2)
  - Dialysis [Unknown]
  - Off label use [Unknown]
